FAERS Safety Report 11908596 (Version 1)
Quarter: 2016Q1

REPORT INFORMATION
  Report Type: Spontaneous
  Country: GR (occurrence: GR)
  Receive Date: 20160111
  Receipt Date: 20160111
  Transmission Date: 20160526
  Serious: Yes (Other)
  Sender: FDA-Public Use
  Company Number: GR-MYLANLABS-2016M1001076

PATIENT

DRUGS (1)
  1. SUNITINIB [Suspect]
     Active Substance: SUNITINIB
     Indication: THYROID CANCER
     Dosage: 50 MG ONCE DAILY
     Route: 065

REACTIONS (5)
  - Hypertriglyceridaemia [Unknown]
  - Left ventricular dysfunction [Unknown]
  - Stomatitis [Unknown]
  - Fatigue [Unknown]
  - Hypertension [Unknown]
